FAERS Safety Report 21033920 (Version 1)
Quarter: 2022Q3

REPORT INFORMATION
  Report Type: Spontaneous
  Country: AT (occurrence: None)
  Receive Date: 20220701
  Receipt Date: 20220701
  Transmission Date: 20221027
  Serious: Yes (Life-Threatening, Other)
  Sender: FDA-Public Use
  Company Number: AT-Merck Healthcare KGaA-9326627

PATIENT
  Age: 36 Year
  Sex: Female
  Weight: 57 kg

DRUGS (5)
  1. MAVENCLAD [Suspect]
     Active Substance: CLADRIBINE
     Indication: Relapsing multiple sclerosis
     Dosage: FIRST CYCLE THERAPY
     Route: 048
     Dates: start: 202103
  2. MAVENCLAD [Suspect]
     Active Substance: CLADRIBINE
     Dosage: SECOND CYCLE THERAPY
     Route: 048
     Dates: start: 202104
  3. MAVENCLAD [Suspect]
     Active Substance: CLADRIBINE
     Dosage: THIRD CYCLE THERAPY
     Route: 048
     Dates: start: 20220314, end: 20220318
  4. MAVENCLAD [Suspect]
     Active Substance: CLADRIBINE
     Dosage: FOURTH CYCLE THERAPY
     Route: 048
     Dates: start: 20220518, end: 20220520
  5. ZOVIRAX [Concomitant]
     Active Substance: ACYCLOVIR
     Indication: Prophylaxis

REACTIONS (9)
  - Lymphopenia [Recovered/Resolved]
  - Endometritis [Unknown]
  - Gastroenteritis clostridial [Unknown]
  - Pain [Unknown]
  - Headache [Unknown]
  - Skin burning sensation [Unknown]
  - Myalgia [Unknown]
  - Pain in extremity [Unknown]
  - General physical health deterioration [Unknown]

NARRATIVE: CASE EVENT DATE: 20220520
